FAERS Safety Report 11614733 (Version 13)
Quarter: 2017Q3

REPORT INFORMATION
  Report Type: Report from Study
  Country: CA (occurrence: CA)
  Receive Date: 20151009
  Receipt Date: 20170908
  Transmission Date: 20171127
  Serious: Yes (Other)
  Sender: FDA-Public Use
  Company Number: CA-ROCHE-1338412

PATIENT
  Age: 44 Year
  Sex: Female

DRUGS (19)
  1. METHYLPREDNISOLONE. [Suspect]
     Active Substance: METHYLPREDNISOLONE
     Indication: PREMEDICATION
     Route: 042
  2. RANITIDINE. [Concomitant]
     Active Substance: RANITIDINE
  3. ZOFRAN [Suspect]
     Active Substance: ONDANSETRON HYDROCHLORIDE
     Indication: NAUSEA
     Route: 065
  4. MELATONIN [Suspect]
     Active Substance: MELATONIN
     Indication: PRODUCT USED FOR UNKNOWN INDICATION
     Route: 065
  5. AMITRIPTYLINE [Concomitant]
     Active Substance: AMITRIPTYLINE
  6. RITUXAN [Suspect]
     Active Substance: RITUXIMAB
     Route: 042
     Dates: start: 20140730
  7. TYLENOL [Suspect]
     Active Substance: ACETAMINOPHEN
     Indication: HEADACHE
     Route: 065
  8. REACTINE (CANADA) [Suspect]
     Active Substance: CETIRIZINE HYDROCHLORIDE
     Indication: VIRAL UPPER RESPIRATORY TRACT INFECTION
     Route: 065
  9. RITUXAN [Suspect]
     Active Substance: RITUXIMAB
     Route: 042
     Dates: start: 20140818
  10. RITUXAN [Suspect]
     Active Substance: RITUXIMAB
     Indication: RHEUMATOID ARTHRITIS
     Dosage: DATE TO MOST RECENT DOSE: 09/MAR/2015?LAST DOSE: 23/MAR/2015
     Route: 042
     Dates: start: 20140120
  11. RITUXAN [Suspect]
     Active Substance: RITUXIMAB
     Route: 042
     Dates: start: 20140206
  12. TRAMADOL. [Concomitant]
     Active Substance: TRAMADOL
  13. VITAMIN B12 [Concomitant]
     Active Substance: CYANOCOBALAMIN
  14. COLACE [Concomitant]
     Active Substance: DOCUSATE SODIUM
  15. RABEPRAZOLE [Concomitant]
     Active Substance: RABEPRAZOLE
  16. VITAMIN C [Concomitant]
     Active Substance: ASCORBIC ACID
  17. PSYLLIUM FIBER [Concomitant]
  18. SENOKOT [Concomitant]
     Active Substance: SENNOSIDES
  19. DOMPERIDONE [Concomitant]
     Active Substance: DOMPERIDONE

REACTIONS (56)
  - Vision blurred [Unknown]
  - Infusion related reaction [Recovering/Resolving]
  - Viral infection [Recovering/Resolving]
  - Headache [Not Recovered/Not Resolved]
  - Body temperature fluctuation [Not Recovered/Not Resolved]
  - Decreased appetite [Not Recovered/Not Resolved]
  - Oral candidiasis [Unknown]
  - Dyspnoea [Not Recovered/Not Resolved]
  - Abdominal pain [Unknown]
  - Chronic sinusitis [Unknown]
  - Lower respiratory tract infection [Not Recovered/Not Resolved]
  - Onychoclasis [Not Recovered/Not Resolved]
  - Fatigue [Unknown]
  - Sinusitis [Not Recovered/Not Resolved]
  - Dry mouth [Not Recovered/Not Resolved]
  - Blister [Not Recovered/Not Resolved]
  - Insomnia [Not Recovered/Not Resolved]
  - Nasopharyngitis [Not Recovered/Not Resolved]
  - Fatigue [Not Recovered/Not Resolved]
  - Pharyngeal oedema [Unknown]
  - Hiatus hernia [Not Recovered/Not Resolved]
  - Menstruation delayed [Not Recovered/Not Resolved]
  - Rheumatoid arthritis [Unknown]
  - Balance disorder [Recovered/Resolved]
  - Rash [Not Recovered/Not Resolved]
  - Lung disorder [Not Recovered/Not Resolved]
  - Pruritus [Unknown]
  - Nausea [Unknown]
  - Weight decreased [Unknown]
  - Gingival pain [Not Recovered/Not Resolved]
  - Fatigue [Not Recovered/Not Resolved]
  - Urticaria [Recovered/Resolved]
  - Lip pruritus [Unknown]
  - Skin burning sensation [Unknown]
  - Fungal infection [Not Recovered/Not Resolved]
  - Bronchitis [Not Recovered/Not Resolved]
  - Cestode infection [Not Recovered/Not Resolved]
  - Vision blurred [Recovered/Resolved]
  - Premenstrual syndrome [Unknown]
  - Sinus disorder [Recovered/Resolved]
  - Epistaxis [Recovered/Resolved]
  - Nausea [Not Recovered/Not Resolved]
  - Tinnitus [Recovering/Resolving]
  - Tinnitus [Not Recovered/Not Resolved]
  - Ill-defined disorder [Unknown]
  - Pain [Not Recovered/Not Resolved]
  - Polymenorrhoea [Unknown]
  - Lichen sclerosus [Recovered/Resolved]
  - Constipation [Not Recovered/Not Resolved]
  - Abdominal pain upper [Not Recovered/Not Resolved]
  - Diarrhoea [Not Recovered/Not Resolved]
  - Hypoaesthesia oral [Unknown]
  - Heart rate increased [Unknown]
  - Restless legs syndrome [Unknown]
  - Malaise [Unknown]
  - Neuralgia [Unknown]

NARRATIVE: CASE EVENT DATE: 20140120
